FAERS Safety Report 7947902-7 (Version None)
Quarter: 2011Q4

REPORT INFORMATION
  Report Type: 
  Country: None (occurrence: None)
  Receive Date: 20111121
  Receipt Date: 20111108
  Transmission Date: 20120403
  Serious: Yes (Other)
  Sender: FDA-Public Use
  Company Number: B0763307A

PATIENT
  Age: 43 Year
  Sex: Female

DRUGS (2)
  1. ALBUTEROL SULFATE [Suspect]
     Indication: ASTHMA
     Dosage: 100 MCG/TWICE PER DAY
  2. SALMETEROL XINAFOATE (FORMULATION UNKNOWN) (GENERIC) (SALMETEROL XINAF [Suspect]
     Indication: ASTHMA

REACTIONS (1)
  - CYSTITIS HAEMORRHAGIC [None]
